FAERS Safety Report 8974374 (Version 1)
Quarter: 2012Q4

REPORT INFORMATION
  Report Type: 
  Country: US (occurrence: US)
  Receive Date: 20121219
  Receipt Date: 20121219
  Transmission Date: 20130627
  Serious: No
  Sender: FDA-Public Use
  Company Number: US-AMGEN-USASP2012055775

PATIENT
  Age: 55 Year
  Sex: Female

DRUGS (2)
  1. PROLIA [Suspect]
     Indication: BONE LOSS
     Dosage: UNK UNK, UNK
     Dates: start: 201008
  2. FEMARA [Concomitant]
     Indication: BREAST CANCER STAGE I
     Dosage: UNK
     Dates: start: 20040615

REACTIONS (1)
  - Rash [Recovered/Resolved]
